FAERS Safety Report 9927144 (Version 1)
Quarter: 2014Q1

REPORT INFORMATION
  Report Type: Spontaneous
  Country: US (occurrence: US)
  Receive Date: 20140226
  Receipt Date: 20140226
  Transmission Date: 20141002
  Serious: No
  Sender: FDA-Public Use
  Company Number: US-AMGEN-USASP2014004944

PATIENT
  Age: 36 Year
  Sex: Female
  Weight: 81.63 kg

DRUGS (11)
  1. ENBREL [Suspect]
     Indication: PSORIATIC ARTHROPATHY
     Dosage: 50 MG, QWK
     Route: 058
  2. NAPROXEN [Concomitant]
     Dosage: UNK
  3. HYDROCODONE [Concomitant]
     Dosage: UNK
  4. CLOTRIMAZOLE [Concomitant]
     Dosage: UNK
  5. BETAMETHA [Concomitant]
     Dosage: UNK
  6. NASONEX [Concomitant]
     Dosage: UNK
  7. TOPIRAMATE [Concomitant]
     Dosage: UNK
  8. OCELLA [Concomitant]
     Dosage: UNK
  9. ONDANSETRON HCL [Concomitant]
     Dosage: UNK
  10. ZUTRIPRO [Concomitant]
     Dosage: UNK
  11. TRANSDERM SCOP [Concomitant]
     Dosage: UNK

REACTIONS (2)
  - Stomatitis [Recovered/Resolved]
  - Nasopharyngitis [Recovered/Resolved]
